FAERS Safety Report 24036458 (Version 1)
Quarter: 2024Q3

REPORT INFORMATION
  Report Type: Spontaneous
  Country: US (occurrence: None)
  Receive Date: 20240701
  Receipt Date: 20240701
  Transmission Date: 20241017
  Serious: Yes (Hospitalization)
  Sender: Public
  Company Number: None

PATIENT
  Age: 20 Year
  Sex: Male

DRUGS (3)
  1. ADVATE [Suspect]
     Active Substance: ANTIHEMOPHILIC FACTOR, HUMAN RECOMBINANT
     Indication: Factor VIII deficiency
     Dosage: 365 UNITS PRN IV?
     Route: 042
     Dates: start: 202112
  2. ADVATE [Suspect]
     Active Substance: ANTIHEMOPHILIC FACTOR, HUMAN RECOMBINANT
     Indication: Factor VIII deficiency
     Dosage: 3000 UNITS PRN IV
     Route: 042
     Dates: start: 202112
  3. HEMUBRA [Concomitant]

REACTIONS (4)
  - Sports injury [None]
  - Arthropathy [None]
  - Muscle haemorrhage [None]
  - Weight decreased [None]

NARRATIVE: CASE EVENT DATE: 20240621
